FAERS Safety Report 15053802 (Version 1)
Quarter: 2018Q2

REPORT INFORMATION
  Report Type: Report from Study
  Country: US (occurrence: US)
  Receive Date: 20180622
  Receipt Date: 20180622
  Transmission Date: 20180711
  Serious: No
  Sender: FDA-Public Use
  Company Number: US-AMGEN-USASL2016057875

PATIENT
  Age: 66 Year
  Sex: Female

DRUGS (2)
  1. RITUXAN [Concomitant]
     Active Substance: RITUXIMAB
     Dosage: UNK
     Dates: start: 2015
  2. NPLATE [Suspect]
     Active Substance: ROMIPLOSTIM
     Indication: PRODUCT USED FOR UNKNOWN INDICATION
     Dosage: UNK UNK, Q2WK
     Route: 065
     Dates: start: 2013

REACTIONS (3)
  - Fatigue [Unknown]
  - Off label use [Unknown]
  - Platelet count abnormal [Unknown]
